FAERS Safety Report 6291945-9 (Version None)
Quarter: 2009Q3

REPORT INFORMATION
  Report Type: 
  Country: None (occurrence: None)
  Receive Date: 20090729
  Receipt Date: 20090715
  Transmission Date: 20100115
  Serious: Yes (Hospitalization)
  Sender: FDA-Public Use
  Company Number: 2006-138037-NL

PATIENT
  Age: 41 Year
  Sex: Female
  Weight: 67.1 kg

DRUGS (3)
  1. NUVARING [Suspect]
     Indication: DYSMENORRHOEA
     Dosage: VAGINAL, 3 WEEKSIN , 1 WEEK OUT
     Route: 067
     Dates: start: 20050901, end: 20060130
  2. NUVARING [Suspect]
     Indication: MENSTRUAL CYCLE MANAGEMENT
     Dosage: VAGINAL, 3 WEEKSIN , 1 WEEK OUT
     Route: 067
     Dates: start: 20050901, end: 20060130
  3. SARAFEM [Concomitant]

REACTIONS (3)
  - BACK PAIN [None]
  - DYSFUNCTIONAL UTERINE BLEEDING [None]
  - PULMONARY EMBOLISM [None]
